FAERS Safety Report 4626367-7 (Version None)
Quarter: 2005Q2

REPORT INFORMATION
  Report Type: 
  Country: None (occurrence: None)
  Receive Date: 20050404
  Receipt Date: 20050331
  Transmission Date: 20051028
  Serious: Yes (Other)
  Sender: FDA-Public Use
  Company Number: DE-GLAXOSMITHKLINE-D0046279A

PATIENT

DRUGS (1)
  1. HYCAMTIN [Suspect]
     Route: 065

REACTIONS (2)
  - LYMPHOCYTOSIS [None]
  - THROMBOCYTOPENIA [None]
